FAERS Safety Report 25685161 (Version 1)
Quarter: 2025Q3

REPORT INFORMATION
  Report Type: Spontaneous
  Country: CA (occurrence: CA)
  Receive Date: 20250815
  Receipt Date: 20250815
  Transmission Date: 20251021
  Serious: Yes (Death, Hospitalization, Other)
  Sender: ALEXION PHARMACEUTICALS
  Company Number: None

PATIENT
  Age: 50 Year
  Sex: Female

DRUGS (10)
  1. FASLODEX [Suspect]
     Active Substance: FULVESTRANT
     Indication: Product used for unknown indication
     Route: 065
  2. FASLODEX [Suspect]
     Active Substance: FULVESTRANT
  3. TAMOXIFEN CITRATE [Suspect]
     Active Substance: TAMOXIFEN CITRATE
     Indication: Product used for unknown indication
     Route: 065
  4. GOSERELIN [Suspect]
     Active Substance: GOSERELIN
     Indication: Product used for unknown indication
     Route: 065
  5. GOSERELIN [Suspect]
     Active Substance: GOSERELIN
  6. PARAPLATIN [Concomitant]
     Active Substance: CARBOPLATIN
     Route: 065
  7. PACLITAXEL [Concomitant]
     Active Substance: PACLITAXEL
  8. IBRANCE [Concomitant]
     Active Substance: PALBOCICLIB
     Route: 065
  9. XELODA [Concomitant]
     Active Substance: CAPECITABINE
     Route: 065
  10. TESETAXEL [Concomitant]
     Active Substance: TESETAXEL
     Route: 065

REACTIONS (14)
  - Adverse drug reaction [Fatal]
  - Bone cancer [Fatal]
  - Dyspnoea [Fatal]
  - Hepatic enzyme abnormal [Fatal]
  - Hepatic neoplasm [Fatal]
  - Hormone receptor positive HER2 negative breast cancer [Fatal]
  - Liver disorder [Fatal]
  - Metastases to eye [Fatal]
  - Mucosal inflammation [Fatal]
  - Neutropenia [Fatal]
  - Paraesthesia [Fatal]
  - Skeletal injury [Fatal]
  - Suspected counterfeit product [Fatal]
  - Tachycardia [Fatal]
